FAERS Safety Report 16920256 (Version 1)
Quarter: 2019Q4

REPORT INFORMATION
  Report Type: Spontaneous
  Country: US (occurrence: US)
  Receive Date: 20191015
  Receipt Date: 20191015
  Transmission Date: 20200122
  Serious: Yes (Disabling)
  Sender: FDA-Public Use
  Company Number: None

PATIENT
  Age: 28 Year

DRUGS (1)
  1. RANITIDINE. [Suspect]
     Active Substance: RANITIDINE

REACTIONS (6)
  - Muscle spasms [None]
  - Dyspepsia [None]
  - Pain [None]
  - Impaired work ability [None]
  - Abdominal pain upper [None]
  - Recalled product administered [None]

NARRATIVE: CASE EVENT DATE: 20190624
